FAERS Safety Report 21886266 (Version 1)
Quarter: 2023Q1

REPORT INFORMATION
  Report Type: Spontaneous
  Country: US (occurrence: None)
  Receive Date: 20230118
  Receipt Date: 20230118
  Transmission Date: 20230417
  Serious: Yes (Other)
  Sender: FDA-Public Use
  Company Number: None

PATIENT
  Sex: Female

DRUGS (10)
  1. HUMIRA [Suspect]
     Active Substance: ADALIMUMAB
     Indication: Rheumatoid arthritis
     Dosage: 40 MG/0.4ML SUBCUTANEOUS? ?INJECT 1 PEN UNDER THE SKIN EVERY 10 DAYS
     Route: 058
     Dates: start: 20211211
  2. ARMOUR THYRO TAB [Concomitant]
  3. DOXEPIN HCL CAP [Concomitant]
  4. ESZOPICLONE TAB [Concomitant]
  5. HYDROXYCHLOR TAB [Concomitant]
  6. METHYLPRED TAB [Concomitant]
  7. MODAFINIL TAB [Concomitant]
  8. OMEPRAZOLE SODIUM [Concomitant]
     Active Substance: OMEPRAZOLE SODIUM
  9. PREDNISONE [Concomitant]
     Active Substance: PREDNISONE
  10. VITAMIN D CAP [Concomitant]

REACTIONS (2)
  - Surgery [None]
  - Intentional dose omission [None]
